FAERS Safety Report 15534886 (Version 1)
Quarter: 2018Q4

REPORT INFORMATION
  Report Type: Spontaneous
  Country: US (occurrence: US)
  Receive Date: 20181022
  Receipt Date: 20181022
  Transmission Date: 20190205
  Serious: No
  Sender: FDA-Public Use
  Company Number: US-TEVA-2017-US-834515

PATIENT
  Sex: Female

DRUGS (1)
  1. MICONAZOLE NITRATE 2% CREAM ANTIFUNGAL [Suspect]
     Active Substance: MICONAZOLE NITRATE
     Indication: VULVOVAGINAL DISCOMFORT
     Dates: start: 20171204

REACTIONS (1)
  - Drug ineffective [Unknown]
